FAERS Safety Report 16472723 (Version 1)
Quarter: 2019Q2

REPORT INFORMATION
  Report Type: Spontaneous
  Country: CZ (occurrence: CZ)
  Receive Date: 20190625
  Receipt Date: 20190625
  Transmission Date: 20190711
  Serious: Yes (Hospitalization, Other)
  Sender: FDA-Public Use
  Company Number: CZ-TEVA-2019-CZ-1068074

PATIENT
  Age: 37 Year
  Sex: Female
  Weight: 61 kg

DRUGS (5)
  1. ANTABUS [Suspect]
     Active Substance: DISULFIRAM
     Indication: ALCOHOLISM
     Dosage: 400 MILLIGRAM DAILY; 1TBL. 29.5.2019, 1TBL. 31.5.2019
     Route: 048
     Dates: start: 20190529, end: 20190531
  2. CLARITINE [Concomitant]
     Active Substance: LORATADINE
     Indication: HYPERSENSITIVITY
     Dosage: LONG TERM MEDICATION
     Route: 048
     Dates: start: 2019, end: 2019
  3. BETALOC ZOK [Concomitant]
     Active Substance: METOPROLOL SUCCINATE
     Indication: HYPERTENSION
     Dosage: 50 MILLIGRAM DAILY; LONG TERM MEDICATION
     Route: 048
     Dates: start: 2019, end: 2019
  4. MIRTAZAPIN [Concomitant]
     Active Substance: MIRTAZAPINE
     Indication: DEPRESSION
     Dosage: LONG TERM MEDICATION
     Route: 048
     Dates: start: 2019, end: 2019
  5. CYNT [Concomitant]
     Indication: HYPERTENSION
     Dosage: LONG TERM MEDICATION
     Route: 048
     Dates: start: 2019, end: 2019

REACTIONS (3)
  - Allergic oedema [Recovering/Resolving]
  - Rash erythematous [Recovering/Resolving]
  - Dermatitis allergic [Recovering/Resolving]

NARRATIVE: CASE EVENT DATE: 201906
